FAERS Safety Report 5514487-4 (Version None)
Quarter: 2007Q4

REPORT INFORMATION
  Report Type: 
  Country: None (occurrence: None)
  Receive Date: 20071113
  Receipt Date: 20071102
  Transmission Date: 20080405
  Serious: Yes (Hospitalization)
  Sender: FDA-Public Use
  Company Number: FR-BAXTER-2007BH006924

PATIENT
  Sex: Male
  Weight: 64 kg

DRUGS (8)
  1. ADVATE [Suspect]
     Indication: HAEMOPHILIA
     Dates: start: 20040101, end: 20070718
  2. INTERFERON [Suspect]
     Indication: HEPATITIS C VIRUS
     Dosage: DOSE UNIT:UNKNOWN
     Route: 065
     Dates: start: 20070101
  3. COPEGUS [Suspect]
     Indication: HEPATITIS C VIRUS
     Dosage: DOSE UNIT:UNKNOWN
     Route: 065
     Dates: start: 20070101
  4. LOPINAVIR [Concomitant]
     Dosage: DOSE UNIT:UNKNOWN
     Route: 065
  5. RITONAVIR [Concomitant]
     Dosage: DOSE UNIT:UNKNOWN
     Route: 065
  6. SUSTIVA [Concomitant]
     Dosage: DOSE UNIT:UNKNOWN
     Route: 065
  7. DEPAKENE [Concomitant]
     Dosage: DOSE UNIT:UNKNOWN
     Route: 065
     Dates: start: 20010101
  8. ACETAMINOPHEN [Concomitant]
     Indication: PAIN

REACTIONS (1)
  - PANCREATITIS ACUTE [None]
